FAERS Safety Report 7672956-5 (Version None)
Quarter: 2011Q3

REPORT INFORMATION
  Report Type: 
  Country: None (occurrence: None)
  Receive Date: 20110809
  Receipt Date: 20110801
  Transmission Date: 20111222
  Serious: Yes (Hospitalization)
  Sender: FDA-Public Use
  Company Number: CN-GILEAD-2011-0042433

PATIENT
  Sex: Male

DRUGS (2)
  1. LAMIVUDINE [Concomitant]
     Indication: HEPATITIS B
     Dates: start: 20110704
  2. HEPSERA [Suspect]
     Indication: HEPATITIS B
     Route: 048
     Dates: start: 20080320, end: 20110701

REACTIONS (1)
  - BLOOD CREATINE PHOSPHOKINASE INCREASED [None]
